FAERS Safety Report 6327489-5 (Version None)
Quarter: 2009Q3

REPORT INFORMATION
  Report Type: 
  Country: None (occurrence: None)
  Receive Date: 20090825
  Receipt Date: 20090819
  Transmission Date: 20100115
  Serious: Yes (Other)
  Sender: FDA-Public Use
  Company Number: DE-SANOFI-SYNTHELABO-A01200605227

PATIENT
  Age: 32 Year
  Sex: Female

DRUGS (4)
  1. PHENOBARBITAL [Concomitant]
     Indication: EPILEPSY
     Dosage: 100 MG
  2. CARBAMAZEPINE [Concomitant]
     Indication: EPILEPSY
     Dosage: 1500 MG
  3. ESTRADERM [Concomitant]
     Indication: PROPHYLAXIS
     Dosage: UNK
     Route: 062
  4. LEUPROLIDE ACETATE [Suspect]
     Indication: PARTIAL SEIZURES
     Dosage: 3.75 MG
     Route: 030

REACTIONS (1)
  - CONVULSION [None]
